FAERS Safety Report 25673756 (Version 1)
Quarter: 2025Q3

REPORT INFORMATION
  Report Type: Report from Study
  Country: KR (occurrence: KR)
  Receive Date: 20250813
  Receipt Date: 20250813
  Transmission Date: 20251021
  Serious: Yes (Other)
  Sender: ALEXION PHARMACEUTICALS
  Company Number: KR-ASTRAZENECA-202508GLO003987KR

PATIENT
  Sex: Female
  Weight: 57.4 kg

DRUGS (1)
  1. OLAPARIB [Suspect]
     Active Substance: OLAPARIB
     Indication: Ovarian cancer
     Dosage: 300 MILLIGRAM, BID
     Dates: start: 20240305

REACTIONS (1)
  - Erythropoiesis abnormal [Recovering/Resolving]

NARRATIVE: CASE EVENT DATE: 20240822
